FAERS Safety Report 5757946-1 (Version None)
Quarter: 2008Q2

REPORT INFORMATION
  Report Type: 
  Country: None (occurrence: None)
  Receive Date: 20080604
  Receipt Date: 20080529
  Transmission Date: 20081010
  Serious: Yes (Other)
  Sender: FDA-Public Use
  Company Number: GB-RANBAXY-2008RR-12686

PATIENT

DRUGS (4)
  1. SIMVASTATIN 10MG TABLETS [Suspect]
     Dosage: 20 MG, UNK
     Route: 048
     Dates: start: 20061201
  2. CLOBAZAM [Suspect]
     Dosage: 10 MG, UNK
  3. VALPROATE SODIUM [Suspect]
     Dosage: 200 MG, QD
  4. MIXTARD HUMAN 70/30 [Concomitant]
     Dosage: 32 UNK, UNK

REACTIONS (2)
  - CONVULSION [None]
  - DRUG INTERACTION [None]
